FAERS Safety Report 17291034 (Version 1)
Quarter: 2020Q1

REPORT INFORMATION
  Report Type: Spontaneous
  Country: US (occurrence: US)
  Receive Date: 20200121
  Receipt Date: 20200121
  Transmission Date: 20200409
  Serious: Yes (Other)
  Sender: FDA-Public Use
  Company Number: US-BAYER-2019-237854

PATIENT
  Age: 18 Year
  Sex: Female

DRUGS (1)
  1. SKYLA [Suspect]
     Active Substance: LEVONORGESTREL
     Dosage: 14 MCG/24HR, CONT
     Route: 015
     Dates: start: 20190510, end: 20190813

REACTIONS (4)
  - Abdominal pain lower [None]
  - Pregnancy with contraceptive device [None]
  - Menstruation delayed [None]
  - Drug ineffective [None]

NARRATIVE: CASE EVENT DATE: 201907
